FAERS Safety Report 23155898 (Version 2)
Quarter: 2024Q1

REPORT INFORMATION
  Report Type: Spontaneous
  Country: US (occurrence: US)
  Receive Date: 20231107
  Receipt Date: 20240129
  Transmission Date: 20240409
  Serious: No
  Sender: FDA-Public Use
  Company Number: US-BRISTOL-MYERS SQUIBB COMPANY-2023-157189

PATIENT
  Age: 58 Year
  Sex: Female
  Weight: 53.98 kg

DRUGS (1)
  1. REVLIMID [Suspect]
     Active Substance: LENALIDOMIDE
     Indication: Plasma cell myeloma
     Dosage: FREQUENCY: 2WKSON/1WKOFF.?FREQUENCY: DAILY FOR 14DAYS.
     Route: 048
     Dates: start: 20220801

REACTIONS (2)
  - Rash [Recovered/Resolved]
  - Off label use [Unknown]
